FAERS Safety Report 19241118 (Version 5)
Quarter: 2024Q2

REPORT INFORMATION
  Report Type: Report from Study
  Country: BE (occurrence: BE)
  Receive Date: 20210511
  Receipt Date: 20240603
  Transmission Date: 20240716
  Serious: Yes (Death, Hospitalization, Other)
  Sender: FDA-Public Use
  Company Number: BE-JNJFOC-20210511268

PATIENT
  Age: 64 Year
  Sex: Male

DRUGS (3)
  1. REMICADE [Suspect]
     Active Substance: INFLIXIMAB
     Indication: Crohn^s disease
     Route: 041
     Dates: start: 20171201, end: 20190106
  2. AZATHIOPRINE [Suspect]
     Active Substance: AZATHIOPRINE
     Indication: Crohn^s disease
     Dosage: DATE OF LAST ADMINISTRATION: 06-JAN-2019
     Route: 065
     Dates: start: 19900101
  3. HUMIRA [Suspect]
     Active Substance: ADALIMUMAB
     Indication: Crohn^s disease
     Route: 065
     Dates: start: 20110501, end: 20171001

REACTIONS (12)
  - Hypovolaemic shock [Fatal]
  - Cholangitis [Fatal]
  - Acute kidney injury [Fatal]
  - Uraemic encephalopathy [Fatal]
  - Septic shock [Fatal]
  - Hepatic failure [Fatal]
  - Anaemia [Recovering/Resolving]
  - Alcohol poisoning [Recovered/Resolved]
  - Syncope [Recovered/Resolved]
  - Hodgkin^s disease [Not Recovered/Not Resolved]
  - Epstein Barr virus positive mucocutaneous ulcer [Not Recovered/Not Resolved]
  - Prostatitis [Recovered/Resolved]

NARRATIVE: CASE EVENT DATE: 20170808
